FAERS Safety Report 4806646-0 (Version None)
Quarter: 2005Q4

REPORT INFORMATION
  Report Type: 
  Country: None (occurrence: None)
  Receive Date: 20051019
  Receipt Date: 20051007
  Transmission Date: 20060501
  Serious: Yes (Hospitalization, Other)
  Sender: FDA-Public Use
  Company Number: 2005124884

PATIENT
  Sex: Male
  Weight: 96.1626 kg

DRUGS (6)
  1. PROCARDIA XL [Suspect]
     Indication: HYPERTENSION
     Dosage: 60 MG (60 MG, 1 IN 1 D), ORAL
     Route: 048
     Dates: start: 19960411
  2. LEVAQUIN [Suspect]
     Indication: NEPHROLITHIASIS
  3. DIPYRIDAMOLE [Concomitant]
  4. FLOMAX [Concomitant]
  5. BETIMOL (TIMOLOL) [Concomitant]
  6. PROTONIX [Concomitant]

REACTIONS (14)
  - BLOOD PRESSURE INCREASED [None]
  - CONDITION AGGRAVATED [None]
  - GASTRIC DISORDER [None]
  - GASTROINTESTINAL HAEMORRHAGE [None]
  - HAEMATEMESIS [None]
  - HAEMATOCHEZIA [None]
  - HAEMORRHOIDS [None]
  - INCORRECT DOSE ADMINISTERED [None]
  - MALLORY-WEISS SYNDROME [None]
  - NEPHROLITHIASIS [None]
  - PHARMACEUTICAL PRODUCT COMPLAINT [None]
  - POST PROCEDURAL COMPLICATION [None]
  - RECTAL HAEMORRHAGE [None]
  - STOOL ANALYSIS ABNORMAL [None]
